FAERS Safety Report 8346951-7 (Version None)
Quarter: 2012Q1

REPORT INFORMATION
  Report Type: 
  Country: None (occurrence: None)
  Receive Date: 20120315
  Receipt Date: 20110524
  Transmission Date: 20120608
  Serious: No
  Sender: FDA-Public Use
  Company Number: PHHY2011US35472

PATIENT
  Age: 51 Year
  Sex: Female

DRUGS (5)
  1. PREMARIN [Concomitant]
  2. SIMVASTATIN [Concomitant]
  3. SERTRALINE HYDROCHLORIDE [Concomitant]
  4. GILENYA [Suspect]
     Indication: MULTIPLE SCLEROSIS
     Dosage: 0.5 MG, DAILY, ORAL
     Route: 048
     Dates: start: 20110420, end: 20110420
  5. VITAMINS (NO INGREDIENTS/SUBSTANCES) [Concomitant]

REACTIONS (1)
  - DRUG INTOLERANCE [None]
